FAERS Safety Report 21307331 (Version 3)
Quarter: 2022Q4

REPORT INFORMATION
  Report Type: Spontaneous
  Country: US (occurrence: US)
  Receive Date: 20220908
  Receipt Date: 20221212
  Transmission Date: 20230113
  Serious: No
  Sender: FDA-Public Use
  Company Number: US-PFIZER INC-PV202200058550

PATIENT
  Age: 74 Year
  Sex: Female

DRUGS (1)
  1. IBRANCE [Suspect]
     Active Substance: PALBOCICLIB
     Dosage: UNK

REACTIONS (11)
  - Ageusia [Unknown]
  - Taste disorder [Unknown]
  - Fatigue [Recovering/Resolving]
  - Fluid retention [Unknown]
  - White blood cell count increased [Unknown]
  - Nausea [Unknown]
  - Constipation [Unknown]
  - Bone pain [Recovered/Resolved]
  - Arthralgia [Recovered/Resolved]
  - Alopecia [Unknown]
  - Gingivitis [Unknown]

NARRATIVE: CASE EVENT DATE: 20220801
